FAERS Safety Report 8977898 (Version 1)
Quarter: 2012Q4

REPORT INFORMATION
  Report Type: 
  Country: IT (occurrence: IT)
  Receive Date: 20121220
  Receipt Date: 20121220
  Transmission Date: 20130627
  Serious: Yes (Hospitalization)
  Sender: FDA-Public Use
  Company Number: PHHO2011IT020110

PATIENT
  Age: 9 Year
  Sex: Female
  Weight: 35.9 kg

DRUGS (3)
  1. ACZ885 [Suspect]
     Indication: JUVENILE ARTHRITIS
     Dosage: 145.2 mg, UNK
     Dates: start: 20110831, end: 20111123
  2. METHOTREXATE [Concomitant]
     Indication: JUVENILE ARTHRITIS
     Dosage: 15 mg/ sett, UNK
     Route: 048
     Dates: start: 20100113, end: 20111118
  3. INDOXEN [Concomitant]
     Indication: JUVENILE ARTHRITIS
     Dosage: 25 mg, QD
     Route: 048
     Dates: start: 20111027, end: 20111124

REACTIONS (2)
  - Beta haemolytic streptococcal infection [Recovered/Resolved]
  - Toxoplasmosis [Not Recovered/Not Resolved]
